FAERS Safety Report 23251715 (Version 1)
Quarter: 2023Q4

REPORT INFORMATION
  Report Type: Spontaneous
  Country: LB (occurrence: LB)
  Receive Date: 20231201
  Receipt Date: 20231201
  Transmission Date: 20240110
  Serious: Yes (Hospitalization, Other)
  Sender: FDA-Public Use
  Company Number: LB-Amarin Pharma  Inc-2023AMR000466

PATIENT
  Age: 22 Year
  Sex: Female

DRUGS (4)
  1. ICOSAPENT ETHYL [Suspect]
     Active Substance: ICOSAPENT ETHYL
     Indication: Hypertriglyceridaemia
  2. FENOFIBRATE [Concomitant]
     Active Substance: FENOFIBRATE
     Indication: Hypertriglyceridaemia
  3. FENOFIBRATE [Concomitant]
     Active Substance: FENOFIBRATE
  4. NIACIN [Concomitant]
     Active Substance: NIACIN
     Indication: Product used for unknown indication

REACTIONS (6)
  - Pancreatitis acute [Unknown]
  - Hypocalcaemia [Unknown]
  - Drug ineffective [Unknown]
  - Premature delivery [Recovered/Resolved]
  - Normal newborn [Recovered/Resolved]
  - Maternal exposure during pregnancy [Recovered/Resolved]
